FAERS Safety Report 5891472-4 (Version None)
Quarter: 2008Q3

REPORT INFORMATION
  Report Type: 
  Country: None (occurrence: None)
  Receive Date: 20080922
  Receipt Date: 20080910
  Transmission Date: 20090109
  Serious: Yes (Hospitalization)
  Sender: FDA-Public Use
  Company Number: FR-TEVA-177441ISR

PATIENT
  Age: 77 Year
  Sex: Male

DRUGS (10)
  1. CARBOPLATIN [Suspect]
     Indication: LUNG NEOPLASM MALIGNANT
     Route: 042
     Dates: start: 20080814, end: 20080814
  2. PACLITAXEL [Suspect]
     Indication: LUNG NEOPLASM MALIGNANT
     Route: 042
     Dates: start: 20080814, end: 20080814
  3. SOLU-MEDROL [Suspect]
     Indication: PREMEDICATION
     Dates: start: 20080814, end: 20080814
  4. PRAVASTATIN [Concomitant]
  5. GLICLAZIDE [Concomitant]
  6. PROPRANOLOL [Concomitant]
  7. TRIMETAZIDIN [Concomitant]
  8. ENOXAPARIN SODIUM [Concomitant]
  9. ONDANSETRON [Concomitant]
  10. METOCLOPRAMIDE [Concomitant]

REACTIONS (4)
  - CONFUSIONAL STATE [None]
  - DISORIENTATION [None]
  - ENCEPHALOPATHY [None]
  - HALLUCINATION [None]
